FAERS Safety Report 8174196-2 (Version None)
Quarter: 2012Q1

REPORT INFORMATION
  Report Type: 
  Country: None (occurrence: None)
  Receive Date: 20120229
  Receipt Date: 20120221
  Transmission Date: 20120608
  Serious: Yes (Other)
  Sender: FDA-Public Use
  Company Number: US-BAYER-2012-018223

PATIENT
  Age: 76 Year
  Sex: Male
  Weight: 99.773 kg

DRUGS (9)
  1. ASPIRIN [Concomitant]
  2. RANITIDINE [Concomitant]
  3. LOVASTATIN [Concomitant]
  4. GLIMEPIRIDE [Concomitant]
  5. MILK OF MAGNESIA TAB [Suspect]
     Dosage: 4 DF, QD, BOTTLE SIZE 26 OZ
     Route: 048
     Dates: start: 20120219, end: 20120220
  6. METOPROLOL SUCCINATE [Concomitant]
  7. LISINOPRIL [Concomitant]
  8. DIGOXIN [Concomitant]
  9. POTASSIUM CHLORIDE [Concomitant]

REACTIONS (1)
  - BLOOD GLUCOSE INCREASED [None]
